FAERS Safety Report 22202680 (Version 3)
Quarter: 2023Q2

REPORT INFORMATION
  Report Type: Spontaneous
  Country: CA (occurrence: CA)
  Receive Date: 20230412
  Receipt Date: 20230605
  Transmission Date: 20230721
  Serious: Yes (Other)
  Sender: FDA-Public Use
  Company Number: CA-PFIZER INC-202300148363

PATIENT
  Age: 43 Year
  Sex: Female
  Weight: 56 kg

DRUGS (11)
  1. RUXIENCE [Suspect]
     Active Substance: RITUXIMAB-PVVR
     Indication: Rheumatoid arthritis
     Dosage: 1000 MG, ON DAY 1 AND DAY 15
     Route: 042
  2. RUXIENCE [Suspect]
     Active Substance: RITUXIMAB-PVVR
     Dosage: 1000 MG DAY 1
     Route: 042
     Dates: start: 20230406
  3. RUXIENCE [Suspect]
     Active Substance: RITUXIMAB-PVVR
     Dosage: 1000 MG DAY 1 AND DAY 15
     Route: 042
     Dates: start: 20230406, end: 20230420
  4. RUXIENCE [Suspect]
     Active Substance: RITUXIMAB-PVVR
     Dosage: 1000 MG DAY 1 AND DAY 15
     Route: 042
     Dates: start: 20230420
  5. ACETAMINOPHEN [Concomitant]
     Active Substance: ACETAMINOPHEN
     Dosage: DOSE AND FREQUENCY UNSPECIFIED
  6. CELEBREX [Concomitant]
     Active Substance: CELECOXIB
     Dosage: DOSE AND FREQUENCY UNSPECIFIED
     Route: 065
  7. CELEBREX [Concomitant]
     Active Substance: CELECOXIB
     Dosage: 1 DF
     Route: 065
  8. DIPHENHYDRAMINE [Concomitant]
     Active Substance: DIPHENHYDRAMINE
     Dosage: DOSE AND FREQUENCY UNSPECIFIED
  9. METHYLPREDNISOLONE [Concomitant]
     Active Substance: METHYLPREDNISOLONE
     Dosage: DOSE AND FREQUENCY UNSPECIFIED
  10. SULFASALAZINE [Concomitant]
     Active Substance: SULFASALAZINE
     Dosage: DOSE AND FREQUENCY UNSPECIFIED
     Route: 065
  11. SULFASALAZINE [Concomitant]
     Active Substance: SULFASALAZINE
     Dosage: 1 DF
     Route: 065

REACTIONS (8)
  - Throat irritation [Recovered/Resolved]
  - Tachycardia [Not Recovered/Not Resolved]
  - Blood pressure systolic increased [Recovered/Resolved]
  - Heart rate increased [Recovered/Resolved]
  - Malaise [Not Recovered/Not Resolved]
  - Infusion related reaction [Recovered/Resolved]
  - Pyrexia [Not Recovered/Not Resolved]
  - Viral infection [Unknown]

NARRATIVE: CASE EVENT DATE: 20230401
